FAERS Safety Report 14878833 (Version 1)
Quarter: 2018Q2

REPORT INFORMATION
  Report Type: Report from Study
  Country: US (occurrence: US)
  Receive Date: 20180511
  Receipt Date: 20180511
  Transmission Date: 20180711
  Serious: Yes (Hospitalization, Other)
  Sender: FDA-Public Use
  Company Number: US-AMGEN-USASL2018061076

PATIENT
  Age: 71 Year
  Sex: Female

DRUGS (5)
  1. ENBREL [Suspect]
     Active Substance: ETANERCEPT
     Dosage: 25 MG, EVERY 5 DAYS OR SO
     Route: 065
     Dates: end: 20171102
  2. ENBREL [Suspect]
     Active Substance: ETANERCEPT
     Indication: RHEUMATOID ARTHRITIS
     Dosage: UNK
     Route: 065
     Dates: start: 199912
  3. ENBREL [Suspect]
     Active Substance: ETANERCEPT
     Dosage: 25 MG, 2 TIMES/WK
     Route: 065
  4. ENBREL [Suspect]
     Active Substance: ETANERCEPT
     Dosage: UNK
     Route: 065
     Dates: start: 20180502
  5. PREDNISONE. [Concomitant]
     Active Substance: PREDNISONE
     Dosage: UNK

REACTIONS (10)
  - Nasopharyngitis [Unknown]
  - Pneumonia [Unknown]
  - Drug effect decreased [Unknown]
  - Pulmonary mass [Unknown]
  - Sinusitis [Unknown]
  - Influenza [Unknown]
  - Dyspnoea [Unknown]
  - Injection site pain [Unknown]
  - Bronchiectasis [Unknown]
  - Malaise [Unknown]

NARRATIVE: CASE EVENT DATE: 201711
